FAERS Safety Report 6048145-7 (Version None)
Quarter: 2009Q1

REPORT INFORMATION
  Report Type: 
  Country: None (occurrence: None)
  Receive Date: 20090123
  Receipt Date: 20071109
  Transmission Date: 20090719
  Serious: Yes (Death)
  Sender: FDA-Public Use
  Company Number: US-ASTRAZENECA-2006UW27518

PATIENT
  Sex: Female
  Weight: 53.5 kg

DRUGS (66)
  1. SEROQUEL [Suspect]
     Route: 048
     Dates: start: 20011003
  2. SEROQUEL [Suspect]
     Dosage: 25 MG IN THE MORNING + 50 MG AT NIGHT
     Route: 048
     Dates: start: 20011005, end: 20011008
  3. SEROQUEL [Suspect]
     Dosage: 50 MG IN THE MORNING + 100 MG AT NIGHT
     Route: 048
     Dates: start: 20011008, end: 20011017
  4. SEROQUEL [Suspect]
     Dosage: 50 MG IN THE MORNING + 150 MG AT NIGHT
     Route: 048
     Dates: start: 20011017, end: 20011029
  5. SEROQUEL [Suspect]
     Dosage: 25 MG IN THE MORNING + 200 MG AT NIGHT
     Route: 048
     Dates: start: 20011029
  6. HALDOL [Concomitant]
     Indication: AGITATION
     Dates: start: 19950101, end: 20050101
  7. HALDOL [Concomitant]
     Route: 048
     Dates: start: 19970601
  8. HALDOL [Concomitant]
     Dosage: 5 MG/ML AMPUL, 0.2 ML (1 MG) FOUR TIMES A DAY IF UNABLE TO TAKE ORAL
     Route: 030
  9. HALDOL [Concomitant]
     Route: 048
  10. HALDOL [Concomitant]
     Route: 048
  11. HALDOL [Concomitant]
     Route: 048
  12. HALDOL [Concomitant]
     Route: 048
     Dates: end: 19980120
  13. HALDOL [Concomitant]
     Route: 048
     Dates: start: 19980120, end: 19990310
  14. HALDOL [Concomitant]
     Route: 048
     Dates: start: 19990310, end: 19991210
  15. HALDOL [Concomitant]
     Route: 048
     Dates: start: 19991210
  16. HALDOL [Concomitant]
     Route: 048
     Dates: start: 19991216, end: 20010409
  17. HALDOL [Concomitant]
     Route: 048
     Dates: end: 20010401
  18. HALDOL [Concomitant]
     Route: 048
     Dates: start: 20010709, end: 20010813
  19. HALDOL [Concomitant]
     Route: 048
     Dates: start: 20010813, end: 20011003
  20. HALDOL [Concomitant]
     Route: 048
     Dates: end: 20011008
  21. HALDOL [Concomitant]
     Route: 048
     Dates: start: 20011008, end: 20011009
  22. RISPERDAL [Concomitant]
     Dates: start: 19950101, end: 20050101
  23. REMERON [Concomitant]
     Dates: start: 20020520
  24. DESYREL [Concomitant]
     Dates: start: 19970613
  25. DESYREL [Concomitant]
     Route: 048
     Dates: start: 19970601
  26. DESYREL [Concomitant]
     Route: 048
     Dates: start: 19970701
  27. DESYREL [Concomitant]
     Route: 048
     Dates: start: 19970101
  28. DESYREL [Concomitant]
     Dosage: EVERY MORNING AND AT 1 PM (IN ADDITION TO 50 MG AT BEDTIME)
     Route: 048
     Dates: start: 19970101
  29. DESYREL [Concomitant]
     Route: 048
     Dates: start: 19980101
  30. DESYREL [Concomitant]
     Route: 048
     Dates: start: 19990101
  31. DESYREL [Concomitant]
     Route: 048
     Dates: start: 19990101
  32. DESYREL [Concomitant]
     Route: 048
     Dates: start: 20000811, end: 20010521
  33. DESYREL [Concomitant]
     Route: 048
     Dates: start: 20010101, end: 20011231
  34. PERI-COLACE [Concomitant]
     Route: 048
     Dates: start: 19970614, end: 19980430
  35. PERI-COLACE [Concomitant]
     Route: 048
  36. DARVOCET-N 100 [Concomitant]
     Indication: BACK PAIN
     Dosage: 1-2 TABLETS EVERY 6 HOURS PRN
     Route: 048
     Dates: start: 19970527
  37. DARVOCET-N 100 [Concomitant]
     Route: 048
     Dates: start: 19970903
  38. DARVOCET-N 100 [Concomitant]
     Route: 048
     Dates: start: 19980331, end: 19980930
  39. ARTANE [Concomitant]
     Route: 048
     Dates: start: 19970531
  40. ARTANE [Concomitant]
     Route: 048
     Dates: end: 20010409
  41. ARTANE [Concomitant]
     Dosage: AT NIGHT
     Route: 048
     Dates: end: 20010409
  42. ARTANE [Concomitant]
     Route: 048
     Dates: start: 20010709, end: 20010917
  43. TYLENOL EX-STRENGTH [Concomitant]
     Indication: PAIN
     Dosage: 1-2 TABLETS (0.5-1GM) EVERY 6 HOURS PRN
     Route: 048
  44. TYLENOL EX-STRENGTH [Concomitant]
     Indication: BACK PAIN
     Dosage: 1-2 TABLETS (0.5-1GM) EVERY 6 HOURS PRN
     Route: 048
  45. ZOLOFT [Concomitant]
     Route: 048
     Dates: start: 19980701
  46. ZOLOFT [Concomitant]
     Route: 048
     Dates: start: 20001108, end: 20010521
  47. TYLENOL W/CODEINE #3 [Concomitant]
     Indication: BACK PAIN
     Dates: start: 19980930
  48. TYLENOL W/CODEINE #3 [Concomitant]
     Dosage: 300/30
     Route: 048
     Dates: start: 19981017, end: 19981108
  49. TYLENOL W/CODEINE #3 [Concomitant]
     Dosage: 300/30
     Route: 048
     Dates: start: 19981108
  50. TYLENOL W/CODEINE #3 [Concomitant]
     Dosage: 300/30
     Route: 048
  51. TYLENOL W/CODEINE #3 [Concomitant]
     Dosage: 300/30
     Route: 048
     Dates: start: 19980101, end: 19990719
  52. TYLENOL W/CODEINE #3 [Concomitant]
     Dosage: 300/30
     Route: 048
     Dates: start: 19980101, end: 19990719
  53. TYLENOL W/CODEINE #3 [Concomitant]
     Route: 048
     Dates: start: 20000815, end: 20010723
  54. TYLENOL W/CODEINE #3 [Concomitant]
     Route: 048
     Dates: start: 20010723
  55. TYLENOL W/CODEINE #3 [Concomitant]
     Route: 048
     Dates: start: 20010727, end: 20010727
  56. TYLENOL W/CODEINE #3 [Concomitant]
     Dosage: 300/30 1-2 TABLETS EVERY 6 HOURS PRN
     Route: 048
     Dates: end: 20020522
  57. VIOXX [Concomitant]
     Dates: start: 20000808
  58. VIOXX [Concomitant]
     Dates: start: 20000811, end: 20010327
  59. VIOXX [Concomitant]
     Route: 048
  60. OYSTER SHELL CALCIUM WITH VITAMIN D [Concomitant]
     Route: 048
     Dates: start: 20000817
  61. ZYPREXA [Concomitant]
     Route: 048
     Dates: start: 20010401, end: 20010416
  62. ZYPREXA [Concomitant]
     Route: 048
     Dates: start: 20010416, end: 20010521
  63. ZYPREXA [Concomitant]
     Route: 048
     Dates: start: 20010521, end: 20010612
  64. ZYPREXA [Concomitant]
     Route: 048
     Dates: start: 20010626
  65. PREVACID [Concomitant]
     Route: 048
     Dates: end: 20010703
  66. NEXIUM [Concomitant]
     Dates: start: 20010717

REACTIONS (3)
  - CEREBROVASCULAR ACCIDENT [None]
  - DIABETES MELLITUS [None]
  - GASTRIC ULCER [None]
